FAERS Safety Report 7905062-2 (Version None)
Quarter: 2011Q4

REPORT INFORMATION
  Report Type: 
  Country: None (occurrence: None)
  Receive Date: 20111109
  Receipt Date: 20111104
  Transmission Date: 20120403
  Serious: Yes (Other)
  Sender: FDA-Public Use
  Company Number: PHEH2011US008695

PATIENT
  Sex: Female

DRUGS (6)
  1. LOVASTATIN [Concomitant]
  2. AMLODIPINE [Concomitant]
  3. VITAMIN D [Concomitant]
  4. RECLAST [Suspect]
     Dosage: UNK
     Route: 042
     Dates: start: 20091201
  5. CALCIUM [Concomitant]
  6. MULTIVITAMIN [Concomitant]

REACTIONS (1)
  - BLOOD DISORDER [None]
